FAERS Safety Report 15125348 (Version 5)
Quarter: 2018Q4

REPORT INFORMATION
  Report Type: Report from Study
  Country: PL (occurrence: PL)
  Receive Date: 20180710
  Receipt Date: 20181005
  Transmission Date: 20190204
  Serious: Yes (Other)
  Sender: FDA-Public Use
  Company Number: PL-PFIZER INC-2018272017

PATIENT

DRUGS (2)
  1. SERTRALINE HCL [Suspect]
     Active Substance: SERTRALINE HYDROCHLORIDE
     Dosage: UNK
  2. FENTANYL. [Interacting]
     Active Substance: FENTANYL
     Indication: CANCER PAIN
     Dosage: UNK

REACTIONS (5)
  - Dyspnoea [Unknown]
  - Drug level increased [Unknown]
  - Respiratory depression [Unknown]
  - Hyperhidrosis [Unknown]
  - Drug interaction [Unknown]
